FAERS Safety Report 8516509-5 (Version None)
Quarter: 2012Q3

REPORT INFORMATION
  Report Type: 
  Country: None (occurrence: None)
  Receive Date: 20120711
  Receipt Date: 20120711
  Transmission Date: 20120928
  Serious: No
  Sender: FDA-Public Use
  Company Number: None

PATIENT
  Sex: Male

DRUGS (2)
  1. RIBAVIRIN [Suspect]
     Indication: HEPATITIS C
     Dosage: 1000 MG DAILY ORALLY
     Route: 048
     Dates: start: 20120330, end: 20120615
  2. PEGASYS [Suspect]
     Indication: HEPATITIS C
     Dosage: 180MCG QW SUB-Q
     Route: 058
     Dates: start: 20120330, end: 20120615

REACTIONS (3)
  - ANAEMIA [None]
  - IMMUNOSUPPRESSION [None]
  - PSORIASIS [None]
